FAERS Safety Report 8024455-9 (Version None)
Quarter: 2012Q1

REPORT INFORMATION
  Report Type: 
  Country: None (occurrence: None)
  Receive Date: 20120105
  Receipt Date: 20111221
  Transmission Date: 20120608
  Serious: Yes (Other)
  Sender: FDA-Public Use
  Company Number: AT-SANOFI-AVENTIS-2011SA084816

PATIENT
  Sex: Male

DRUGS (6)
  1. MULTAQ [Suspect]
     Route: 048
     Dates: start: 20100101
  2. BISOPROLOL FUMARATE [Concomitant]
  3. MARCUMAR [Concomitant]
  4. DIOVAN [Concomitant]
  5. LANITOP [Concomitant]
  6. RANOLAZINE [Concomitant]

REACTIONS (2)
  - ATRIAL FIBRILLATION [None]
  - BRAIN NATRIURETIC PEPTIDE INCREASED [None]
